FAERS Safety Report 24772016 (Version 1)
Quarter: 2024Q4

REPORT INFORMATION
  Report Type: Report from Study
  Country: US (occurrence: US)
  Receive Date: 20241224
  Receipt Date: 20241224
  Transmission Date: 20250115
  Serious: Yes (Hospitalization)
  Sender: ELI LILLY AND COMPANY
  Company Number: US-ELI_LILLY_AND_COMPANY-US202410020335

PATIENT
  Age: 72 Year
  Sex: Female

DRUGS (1)
  1. VERZENIO [Suspect]
     Active Substance: ABEMACICLIB
     Indication: Breast cancer metastatic
     Dosage: 150 MG, DAILY
     Route: 065
     Dates: start: 20241010, end: 20241122

REACTIONS (8)
  - Red blood cell count decreased [Unknown]
  - Dental discomfort [Unknown]
  - Abdominal pain upper [Unknown]
  - Cough [Unknown]
  - Constipation [Recovering/Resolving]
  - Fatigue [Unknown]
  - Nausea [Unknown]
  - Decreased appetite [Unknown]
